FAERS Safety Report 4407955-X (Version None)
Quarter: 2004Q3

REPORT INFORMATION
  Report Type: 
  Country: None (occurrence: None)
  Receive Date: 20040716
  Receipt Date: 20040707
  Transmission Date: 20050211
  Serious: Yes (Other)
  Sender: FDA-Public Use
  Company Number: 2004222418FR

PATIENT
  Age: 42 Year
  Sex: Female

DRUGS (3)
  1. DEPO-PROVERA [Suspect]
     Indication: CONTRACEPTION
     Dosage: 150 MG/3 MONTHS, FOR 5 YEARS, INTRAMUSCULAR
     Route: 030
  2. STILNOX (ZOLPIDEM) [Concomitant]
  3. PROZAC [Concomitant]

REACTIONS (2)
  - HEPATIC FUNCTION ABNORMAL [None]
  - HEPATOMEGALY [None]
